FAERS Safety Report 17104615 (Version 1)
Quarter: 2019Q4

REPORT INFORMATION
  Report Type: Spontaneous
  Country: US (occurrence: US)
  Receive Date: 20191203
  Receipt Date: 20191203
  Transmission Date: 20200122
  Serious: No
  Sender: FDA-Public Use
  Company Number: US-UCBSA-2018004639

PATIENT
  Age: 70 Year
  Sex: Female
  Weight: 86.17 kg

DRUGS (1)
  1. CIMZIA [Suspect]
     Active Substance: CERTOLIZUMAB PEGOL
     Indication: PSORIATIC ARTHROPATHY
     Dosage: 400 MG, 2 INDUCTION DOSES TAKEN
     Route: 058
     Dates: start: 201711, end: 201711

REACTIONS (4)
  - Dizziness [Recovering/Resolving]
  - Rash [Recovering/Resolving]
  - Balance disorder [Recovering/Resolving]
  - Pruritus [Recovering/Resolving]

NARRATIVE: CASE EVENT DATE: 201711
